FAERS Safety Report 5474330-9 (Version None)
Quarter: 2007Q4

REPORT INFORMATION
  Report Type: 
  Country: None (occurrence: None)
  Receive Date: 20071002
  Receipt Date: 20070924
  Transmission Date: 20080405
  Serious: Yes (Other)
  Sender: FDA-Public Use
  Company Number: PHBS2007CL15995

PATIENT
  Age: 91 Year
  Sex: Female

DRUGS (2)
  1. ZOLEDRONIC ACID [Suspect]
     Indication: METASTASES TO BONE
     Dosage: 4 MG, UNK
  2. TAMOXIFEN CITRATE [Concomitant]
     Indication: BREAST CANCER METASTATIC
     Dosage: 20 MG/D

REACTIONS (7)
  - BONE DEBRIDEMENT [None]
  - BONE DISORDER [None]
  - COMPUTERISED TOMOGRAM ABNORMAL [None]
  - IMPAIRED HEALING [None]
  - MOUTH ULCERATION [None]
  - OEDEMA MOUTH [None]
  - OSTEONECROSIS [None]
